FAERS Safety Report 19489367 (Version 1)
Quarter: 2021Q3

REPORT INFORMATION
  Report Type: Spontaneous
  Country: US (occurrence: US)
  Receive Date: 20210703
  Receipt Date: 20210703
  Transmission Date: 20211014
  Serious: No
  Sender: FDA-Public Use
  Company Number: US-SA-2021SA205736

PATIENT
  Sex: Female

DRUGS (1)
  1. ALLEGRA [Suspect]
     Active Substance: FEXOFENADINE HYDROCHLORIDE
     Dosage: UNK
     Route: 065

REACTIONS (20)
  - Loss of personal independence in daily activities [Not Recovered/Not Resolved]
  - Peripheral swelling [Recovering/Resolving]
  - Depressed mood [Not Recovered/Not Resolved]
  - Fatigue [Unknown]
  - Fear [Not Recovered/Not Resolved]
  - Sleep disorder [Recovering/Resolving]
  - Anxiety [Not Recovered/Not Resolved]
  - Gastrooesophageal reflux disease [Not Recovered/Not Resolved]
  - Abnormal faeces [Recovering/Resolving]
  - Nausea [Not Recovered/Not Resolved]
  - Dyspnoea [Unknown]
  - Insomnia [Recovering/Resolving]
  - Decreased appetite [Recovering/Resolving]
  - Diarrhoea [Not Recovered/Not Resolved]
  - Vomiting [Not Recovered/Not Resolved]
  - Pharyngeal swelling [Recovering/Resolving]
  - Injection site reaction [Not Recovered/Not Resolved]
  - Abdominal pain upper [Not Recovered/Not Resolved]
  - Dermatitis allergic [Not Recovered/Not Resolved]
  - Pruritus allergic [Not Recovered/Not Resolved]
